FAERS Safety Report 17158833 (Version 1)
Quarter: 2019Q4

REPORT INFORMATION
  Report Type: Report from Study
  Country: DE (occurrence: DE)
  Receive Date: 20191216
  Receipt Date: 20191216
  Transmission Date: 20200122
  Serious: Yes (Hospitalization)
  Sender: FDA-Public Use
  Company Number: PHHO2018DE012685

PATIENT
  Age: 57 Year
  Sex: Female
  Weight: 71 kg

DRUGS (12)
  1. CGS 20267 [Suspect]
     Active Substance: LETROZOLE
     Indication: BREAST CANCER
     Dosage: 2.5 MG, QD
     Route: 048
     Dates: start: 20180316
  2. MORPHIN AL [Concomitant]
     Active Substance: MORPHINE SULFATE
     Indication: PRODUCT USED FOR UNKNOWN INDICATION
     Dosage: BID
     Route: 065
     Dates: start: 20181122
  3. LEVOTHYROXINE. [Concomitant]
     Active Substance: LEVOTHYROXINE
     Indication: HYPOTHYROIDISM
     Dosage: 50 MG, UNK
     Route: 048
     Dates: start: 20161001
  4. PREGABALIN. [Concomitant]
     Active Substance: PREGABALIN
     Indication: NEURALGIA
     Dosage: 75 MG, UNK
     Route: 048
     Dates: start: 20170301
  5. OMEPRAZOL [Concomitant]
     Active Substance: OMEPRAZOLE
     Indication: PROPHYLAXIS
     Dosage: 20 MG, UNK
     Route: 048
     Dates: start: 20170301
  6. METAMIZOLE [Concomitant]
     Active Substance: METAMIZOLE
     Indication: BONE PAIN
     Dosage: 1 G, UNK
     Route: 065
     Dates: start: 20181024
  7. ENOXAPARINUM NATRICUM [Concomitant]
     Indication: PROPHYLAXIS
     Dosage: 0.4 ML, UNK
     Route: 058
     Dates: start: 20180115
  8. ORAMORPH [Concomitant]
     Active Substance: MORPHINE SULFATE
     Indication: PAIN
     Dosage: 20 MG, UNK
     Route: 048
  9. MST [Concomitant]
     Indication: PAIN
     Dosage: 80 MG, UNK
     Route: 048
     Dates: start: 20181211
  10. RIBOCICLIB. [Suspect]
     Active Substance: RIBOCICLIB
     Indication: BREAST CANCER
     Dosage: 200 MG, BID
     Route: 048
     Dates: start: 20180316
  11. AMITRIPTYLINE [Concomitant]
     Active Substance: AMITRIPTYLINE
     Indication: DEPRESSION
     Dosage: 10 MG, UNK
     Route: 048
     Dates: start: 20170301
  12. RAMIPRIL. [Concomitant]
     Active Substance: RAMIPRIL
     Indication: HYPERTENSION
     Dosage: 2.5 MG, UNK
     Route: 048
     Dates: start: 20171001

REACTIONS (2)
  - Arthralgia [Recovered/Resolved]
  - Femoral neck fracture [Recovered/Resolved]

NARRATIVE: CASE EVENT DATE: 20181126
